FAERS Safety Report 23565142 (Version 2)
Quarter: 2024Q1

REPORT INFORMATION
  Report Type: Spontaneous
  Country: CA (occurrence: CA)
  Receive Date: 20240226
  Receipt Date: 20240312
  Transmission Date: 20240410
  Serious: Yes (Hospitalization)
  Sender: FDA-Public Use
  Company Number: CA-FreseniusKabi-FK202402947

PATIENT
  Age: 34 Year
  Sex: Male

DRUGS (9)
  1. DIPHENHYDRAMINE HYDROCHLORIDE [Suspect]
     Active Substance: DIPHENHYDRAMINE HYDROCHLORIDE
     Indication: Product used for unknown indication
     Route: 065
  2. COCAINE [Suspect]
     Active Substance: COCAINE
     Indication: Product used for unknown indication
     Dosage: ROUTE: UNKNOWN
  3. CLONAZEPAM [Suspect]
     Active Substance: CLONAZEPAM
     Indication: Product used for unknown indication
     Dosage: FORM: TABLET?ROUTE: UNKNOWN
  4. ACETAMINOPHEN [Suspect]
     Active Substance: ACETAMINOPHEN
     Indication: Product used for unknown indication
     Dosage: FORM: NOT SPECIFIED?ROUTE: UNKNOWN
  5. GABAPENTIN [Suspect]
     Active Substance: GABAPENTIN
     Indication: Product used for unknown indication
     Dosage: FORM: NOT SPECIFIED?ROUTE: UNKNOWN
  6. LORAZEPAM [Suspect]
     Active Substance: LORAZEPAM
     Indication: Product used for unknown indication
     Dosage: FORM: NOT SPECIFIED?ROUTE: UNKNOWN
  7. OLANZAPINE [Suspect]
     Active Substance: OLANZAPINE
     Indication: Product used for unknown indication
     Dosage: FORM: NOT SPECIFIED?ROUTE: UNKNOWN
  8. RISPERIDONE [Suspect]
     Active Substance: RISPERIDONE
     Indication: Product used for unknown indication
     Dosage: FORM: NOT SPECIFIED?ROUTE: UNKNOWN
  9. METHADOSE SUGAR-FREE [Suspect]
     Active Substance: METHADONE HYDROCHLORIDE
     Indication: Product used for unknown indication
     Dosage: FORM: SOLUTION ORAL?ROUTE: UNKNOWN

REACTIONS (1)
  - Substance-induced psychotic disorder [Unknown]
